FAERS Safety Report 20721617 (Version 2)
Quarter: 2022Q2

REPORT INFORMATION
  Report Type: Spontaneous
  Country: CA (occurrence: CA)
  Receive Date: 20220418
  Receipt Date: 20220624
  Transmission Date: 20220720
  Serious: Yes (Other)
  Sender: FDA-Public Use
  Company Number: CA-PFIZER INC-202101654956

PATIENT
  Age: 50 Year
  Sex: Male
  Weight: 65 kg

DRUGS (6)
  1. XELJANZ [Suspect]
     Active Substance: TOFACITINIB CITRATE
     Indication: Colitis ulcerative
     Dosage: 10 MG, 2X/DAY
     Route: 048
     Dates: start: 20211119
  2. XELJANZ [Suspect]
     Active Substance: TOFACITINIB CITRATE
     Dosage: 5 MG, 2X/DAY, MAINTENANCE
     Route: 048
  3. XELJANZ [Suspect]
     Active Substance: TOFACITINIB CITRATE
     Dosage: 10 MG, 2X/DAY, MAINTENANCE
     Route: 048
     Dates: start: 202204
  4. IRON [Concomitant]
     Active Substance: IRON
     Dosage: IRON IV X 3 DOSES (INFUSIONS)
  5. IRON [Concomitant]
     Active Substance: IRON
     Dosage: 1 DF, DOSAGE NOT AVAILABLE
     Route: 065
  6. PREDNISONE [Concomitant]
     Active Substance: PREDNISONE
     Dosage: 1 DF, DOSAGE NOT AVAILABLE
     Route: 065

REACTIONS (5)
  - Haematochezia [Not Recovered/Not Resolved]
  - Therapeutic response unexpected [Recovering/Resolving]
  - Weight increased [Unknown]
  - Diarrhoea [Recovering/Resolving]
  - Mucous stools [Not Recovered/Not Resolved]

NARRATIVE: CASE EVENT DATE: 20210101
